FAERS Safety Report 25697922 (Version 2)
Quarter: 2025Q4

REPORT INFORMATION
  Report Type: Spontaneous
  Country: US (occurrence: US)
  Receive Date: 20250819
  Receipt Date: 20251014
  Transmission Date: 20260117
  Serious: No
  Sender: CIPLA
  Company Number: US-CIPLA LTD.-2025US10009

PATIENT

DRUGS (4)
  1. LANREOTIDE ACETATE [Suspect]
     Active Substance: LANREOTIDE ACETATE
     Indication: Neoplasm malignant
     Dosage: UNK (1ST INJECTION, 120 MG/0.5 ML)
     Route: 065
     Dates: start: 20250610
  2. LANREOTIDE ACETATE [Suspect]
     Active Substance: LANREOTIDE ACETATE
     Dosage: UNK (2ND INJECTION, 120 MG/0.5 ML)
     Route: 065
     Dates: start: 20250708
  3. LANREOTIDE ACETATE [Suspect]
     Active Substance: LANREOTIDE ACETATE
     Dosage: UNK (3RD INJECTION, 120 MG/0.5 ML)
     Route: 065
     Dates: start: 20250805
  4. FLOMAX [Concomitant]
     Active Substance: TAMSULOSIN HYDROCHLORIDE
     Indication: Prostatic disorder
     Dosage: UNK
     Route: 065

REACTIONS (2)
  - Drug dose omission by device [Unknown]
  - Product gel formation [Unknown]

NARRATIVE: CASE EVENT DATE: 20250805
